FAERS Safety Report 21160048 (Version 1)
Quarter: 2022Q3

REPORT INFORMATION
  Report Type: Spontaneous
  Country: US (occurrence: US)
  Receive Date: 20220802
  Receipt Date: 20220802
  Transmission Date: 20221026
  Serious: Yes (Hospitalization, Other)
  Sender: FDA-Public Use
  Company Number: US-SUN PHARMACEUTICAL INDUSTRIES LTD-2022R1-346934

PATIENT
  Age: 18 Year
  Sex: Female

DRUGS (1)
  1. CAFFEINE [Suspect]
     Active Substance: CAFFEINE
     Indication: Intentional product misuse
     Dosage: 200 MILLIGRAM
     Route: 065

REACTIONS (7)
  - Intentional overdose [Unknown]
  - Suicide attempt [Unknown]
  - Vomiting [Unknown]
  - Palpitations [Unknown]
  - Hypokalaemia [Unknown]
  - Sinus tachycardia [Unknown]
  - Electrocardiogram QT prolonged [Recovered/Resolved]
